FAERS Safety Report 8553182-4 (Version None)
Quarter: 2012Q3

REPORT INFORMATION
  Report Type: 
  Country: None (occurrence: None)
  Receive Date: 20120725
  Receipt Date: 20120725
  Transmission Date: 20120928
  Serious: No
  Sender: FDA-Public Use
  Company Number: None

PATIENT
  Sex: Female

DRUGS (1)
  1. REBIF [Suspect]
     Indication: MULTIPLE SCLEROSIS
     Dosage: 22 UG TIW SUBQ
     Route: 058
     Dates: start: 20120709, end: 20120718

REACTIONS (3)
  - HYPERTENSION [None]
  - HEADACHE [None]
  - INFLUENZA LIKE ILLNESS [None]
